FAERS Safety Report 5168570-6 (Version None)
Quarter: 2006Q4

REPORT INFORMATION
  Report Type: 
  Country: None (occurrence: None)
  Receive Date: 20061208
  Receipt Date: 20061128
  Transmission Date: 20070319
  Serious: Yes (Other)
  Sender: FDA-Public Use
  Company Number: CH-ABBOTT-06P-151-0352004-00

PATIENT
  Age: 40 Year
  Sex: Female

DRUGS (3)
  1. DEPAKENE [Suspect]
     Indication: BIPOLAR DISORDER
     Route: 048
     Dates: start: 20061018
  2. QUETIAPINE FUMARATE [Interacting]
     Indication: BIPOLAR DISORDER
     Route: 048
     Dates: start: 20061018, end: 20061025
  3. CLONAZEPAM [Concomitant]
     Indication: ANXIETY DISORDER
     Route: 048
     Dates: start: 20030101

REACTIONS (4)
  - BLOOD PRESSURE DECREASED [None]
  - DRUG INTERACTION [None]
  - SUPRAVENTRICULAR EXTRASYSTOLES [None]
  - VENTRICULAR EXTRASYSTOLES [None]
